FAERS Safety Report 9225476 (Version 3)
Quarter: 2013Q3

REPORT INFORMATION
  Report Type: Report from Study
  Country: CA (occurrence: CA)
  Receive Date: 20130411
  Receipt Date: 20130828
  Transmission Date: 20140515
  Serious: Yes (Other)
  Sender: FDA-Public Use
  Company Number: CA-ROCHE-1211284

PATIENT
  Sex: Female
  Weight: 68.9 kg

DRUGS (8)
  1. RITUXAN [Suspect]
     Indication: COLD TYPE HAEMOLYTIC ANAEMIA
     Route: 042
     Dates: start: 2005
  2. RITUXAN [Suspect]
     Indication: OFF LABEL USE
     Route: 042
     Dates: start: 2010
  3. CYCLOPHOSPHAMIDE [Suspect]
     Indication: PRODUCT USED FOR UNKNOWN INDICATION
     Route: 048
     Dates: start: 201004, end: 2010
  4. QUININE [Concomitant]
     Indication: MUSCLE SPASMS
     Route: 065
  5. FOLIC ACID [Concomitant]
     Route: 065
  6. LANSOPRAZOLE [Concomitant]
     Indication: DYSPEPSIA
     Route: 065
  7. ACTONEL [Concomitant]
  8. PREDNISONE [Concomitant]

REACTIONS (8)
  - Macular degeneration [Not Recovered/Not Resolved]
  - Nausea [Unknown]
  - Hyperhidrosis [Unknown]
  - Chest discomfort [Unknown]
  - Hypoaesthesia [Unknown]
  - Palpitations [Unknown]
  - Headache [Unknown]
  - Cold type haemolytic anaemia [Not Recovered/Not Resolved]
